FAERS Safety Report 7995263-X (Version None)
Quarter: 2011Q4

REPORT INFORMATION
  Report Type: 
  Country: None (occurrence: None)
  Receive Date: 20111220
  Receipt Date: 20111220
  Transmission Date: 20120403
  Serious: Yes (Other)
  Sender: FDA-Public Use
  Company Number: None

PATIENT
  Age: 38 Year
  Sex: Female
  Weight: 127 kg

DRUGS (1)
  1. LUPRON [Suspect]
     Indication: UTERINE LEIOMYOMA
     Dosage: 3 MONTH INJECTION
     Dates: start: 20111121, end: 20111230

REACTIONS (4)
  - ARTHRALGIA [None]
  - VISUAL IMPAIRMENT [None]
  - ABASIA [None]
  - ACNE [None]
